FAERS Safety Report 15878079 (Version 11)
Quarter: 2019Q4

REPORT INFORMATION
  Report Type: Spontaneous
  Country: DE (occurrence: DE)
  Receive Date: 20190128
  Receipt Date: 20191224
  Transmission Date: 20200122
  Serious: Yes (Death, Life-Threatening, Hospitalization, Other)
  Sender: FDA-Public Use
  Company Number: DE-AUROBINDO-AUR-APL-2018-055490

PATIENT
  Sex: Female
  Weight: 77 kg

DRUGS (11)
  1. AMITRIPTYLIN [Concomitant]
     Active Substance: AMITRIPTYLINE
     Indication: PRODUCT USED FOR UNKNOWN INDICATION
     Dosage: 50 MILLIGRAM
     Route: 065
     Dates: start: 201901
  2. KISQALI [Suspect]
     Active Substance: RIBOCICLIB
     Indication: BREAST CANCER METASTATIC
     Dosage: 600 MILLIGRAM, (21/7)
     Route: 048
     Dates: start: 20181012
  3. LEVOTHYROXINE. [Concomitant]
     Active Substance: LEVOTHYROXINE
     Indication: PRODUCT USED FOR UNKNOWN INDICATION
     Dosage: IN MORNING
     Route: 065
  4. KISQALI [Suspect]
     Active Substance: RIBOCICLIB
     Dosage: 600 MILLIGRAM, (21/7)
     Route: 048
     Dates: start: 20181013, end: 20190119
  5. LETROZOLE. [Suspect]
     Active Substance: LETROZOLE
     Indication: BREAST CANCER METASTATIC
     Dosage: 2.5 MILLIGRAM, ONCE A DAY
     Route: 048
     Dates: start: 20181004, end: 20190122
  6. METAMIZOLE [Concomitant]
     Active Substance: METAMIZOLE
     Indication: PRODUCT USED FOR UNKNOWN INDICATION
     Dosage: 500 MILLIGRAM PRN
     Route: 065
     Dates: start: 2018
  7. TOREM [Concomitant]
     Active Substance: TORSEMIDE
     Indication: PRODUCT USED FOR UNKNOWN INDICATION
     Dosage: 05 MILLIGRAM, ONCE A DAY, ONCE IN MORNING
     Route: 065
     Dates: start: 20181012, end: 20181025
  8. TOREM [Concomitant]
     Active Substance: TORSEMIDE
     Dosage: 10 MILLIGRAM, ONCE A DAY, ONCE IN MORNING
     Route: 065
     Dates: start: 20181026, end: 20190207
  9. METODURA [Concomitant]
     Active Substance: METOPROLOL TARTRATE
     Indication: PRODUCT USED FOR UNKNOWN INDICATION
     Dosage: 100 MILLIGRAM
     Route: 016
  10. PANTOZOL [Concomitant]
     Active Substance: PANTOPRAZOLE SODIUM
     Indication: PRODUCT USED FOR UNKNOWN INDICATION
     Dosage: 40 MILLIGRAM
     Route: 065
  11. LERCANIDIPINE [Concomitant]
     Active Substance: LERCANIDIPINE
     Indication: PRODUCT USED FOR UNKNOWN INDICATION
     Dosage: 10 MILLIGRAM
     Route: 065

REACTIONS (13)
  - Restrictive pulmonary disease [Fatal]
  - Ascites [Not Recovered/Not Resolved]
  - Pleural effusion [Fatal]
  - Respiratory failure [Fatal]
  - Metastases to pleura [Fatal]
  - Anaemia [Fatal]
  - Neutropenia [Recovering/Resolving]
  - Concomitant disease aggravated [Fatal]
  - C-reactive protein increased [Unknown]
  - Hypokalaemia [Recovered/Resolved]
  - Pneumothorax [Fatal]
  - Leukopenia [Fatal]
  - Pneumonia [Fatal]

NARRATIVE: CASE EVENT DATE: 20181025
